FAERS Safety Report 16738808 (Version 1)
Quarter: 2019Q3

REPORT INFORMATION
  Report Type: Spontaneous
  Country: US (occurrence: US)
  Receive Date: 20190826
  Receipt Date: 20190826
  Transmission Date: 20191005
  Serious: No
  Sender: FDA-Public Use
  Company Number: US-009507513-1908USA000589

PATIENT
  Sex: Male

DRUGS (4)
  1. DIPHENHYDRAMINE. [Concomitant]
     Active Substance: DIPHENHYDRAMINE
     Dosage: 3.0 MG/KG/D, DOSED EVERY 6 H AS NEEDED
  2. ELOCON [Suspect]
     Active Substance: MOMETASONE FUROATE
     Dosage: 0.1% CREAM WAS APPLIED ONCE DAILY
     Route: 061
  3. RANITIDINE. [Concomitant]
     Active Substance: RANITIDINE
     Dosage: 4.0 MG/KG/D, DOSED EVERY 12H
  4. CETIRIZINE HYDROCHLORIDE. [Concomitant]
     Active Substance: CETIRIZINE HYDROCHLORIDE
     Dosage: 2.5 MG ONCE DAILY

REACTIONS (1)
  - Intentional product use issue [Unknown]
